FAERS Safety Report 15848677 (Version 2)
Quarter: 2019Q1

REPORT INFORMATION
  Report Type: Spontaneous
  Country: US (occurrence: US)
  Receive Date: 20190121
  Receipt Date: 20190213
  Transmission Date: 20190417
  Serious: Yes (Other)
  Sender: FDA-Public Use
  Company Number: US-AMGEN-USASP2019006562

PATIENT
  Age: 4 Year
  Sex: Female

DRUGS (1)
  1. ARANESP [Suspect]
     Active Substance: DARBEPOETIN ALFA
     Indication: END STAGE RENAL DISEASE
     Dosage: 40 MUG, QWK
     Route: 065
     Dates: start: 20171214

REACTIONS (3)
  - Iron deficiency [Unknown]
  - Inflammation [Unknown]
  - Drug ineffective [Unknown]
